FAERS Safety Report 10076428 (Version 2)
Quarter: 2014Q2

REPORT INFORMATION
  Report Type: Spontaneous
  Country: US (occurrence: US)
  Receive Date: 20140414
  Receipt Date: 20140430
  Transmission Date: 20141212
  Serious: No
  Sender: FDA-Public Use
  Company Number: US-009507513-1404USA000730

PATIENT
  Age: 58 Year
  Sex: Female
  Weight: 68.27 kg

DRUGS (12)
  1. OXYTROL FOR WOMEN [Suspect]
     Indication: URGE INCONTINENCE
     Dosage: 1 DF, Q6D
     Route: 062
     Dates: start: 20140201
  2. WELLBUTRIN [Concomitant]
     Indication: DEPRESSION
     Dosage: UNK, UNKNOWN
  3. ESCITALOPRAM [Concomitant]
     Indication: DEPRESSION
     Dosage: UNK, UNKNOWN
  4. BUSPAR [Concomitant]
     Indication: POST-TRAUMATIC STRESS DISORDER
     Dosage: UNK, UNKNOWN
  5. KLONOPIN [Concomitant]
     Indication: POST-TRAUMATIC STRESS DISORDER
     Dosage: UNK, UNKNOWN
  6. ATIVAN [Concomitant]
     Indication: POST-TRAUMATIC STRESS DISORDER
     Dosage: UNK, UNKNOWN
  7. LEVOTHYROXINE SODIUM [Concomitant]
     Indication: HYPOTHYROIDISM
     Dosage: 75 MICROGRAM, UNKNOWN
  8. FLEXERIL [Concomitant]
     Indication: MUSCLE SPASMS
     Dosage: UNK, UNKNOWN
  9. FLEXERIL [Concomitant]
     Indication: MIGRAINE
  10. IMITREX (SUMATRIPTAN SUCCINATE) [Concomitant]
     Indication: MUSCLE SPASMS
     Dosage: UNK, UNKNOWN
  11. IMITREX (SUMATRIPTAN SUCCINATE) [Concomitant]
     Indication: MIGRAINE
  12. PREMARIN [Concomitant]
     Indication: POSTMENOPAUSE
     Dosage: UNK, UNKNOWN

REACTIONS (1)
  - Inappropriate schedule of drug administration [Unknown]
